FAERS Safety Report 11183433 (Version 1)
Quarter: 2015Q2

REPORT INFORMATION
  Report Type: Spontaneous
  Country: US (occurrence: US)
  Receive Date: 20150612
  Receipt Date: 20150612
  Transmission Date: 20150821
  Serious: No
  Sender: FDA-Public Use
  Company Number: US-MALLINCKRODT-T201403740

PATIENT

DRUGS (1)
  1. ULTRATAG RBC [Suspect]
     Active Substance: STANNOUS CHLORIDE
     Indication: MULTIPLE GATED ACQUISITION SCAN
     Dosage: UNK
     Route: 065

REACTIONS (2)
  - Nausea [Unknown]
  - Vomiting [Unknown]
